FAERS Safety Report 24147460 (Version 1)
Quarter: 2024Q3

REPORT INFORMATION
  Report Type: Spontaneous
  Country: CH (occurrence: CH)
  Receive Date: 20240729
  Receipt Date: 20240729
  Transmission Date: 20241017
  Serious: Yes (Other)
  Sender: PFIZER
  Company Number: CH-PFIZER INC-202400221961

PATIENT
  Age: 33 Year
  Sex: Female

DRUGS (1)
  1. DEPO-PROVERA [Suspect]
     Active Substance: MEDROXYPROGESTERONE ACETATE
     Indication: Endometriosis
     Dosage: UNK, EVERY 3 MONTHS

REACTIONS (3)
  - Hysterectomy [Recovering/Resolving]
  - Osteoporosis [Recovering/Resolving]
  - Off label use [Unknown]
